FAERS Safety Report 4893143-X (Version None)
Quarter: 2005Q4

REPORT INFORMATION
  Report Type: 
  Country: None (occurrence: None)
  Receive Date: 20051223
  Receipt Date: 20050928
  Transmission Date: 20060501
  Serious: Yes (Other)
  Sender: FDA-Public Use
  Company Number: PHEH2005US10827

PATIENT
  Age: 18 Year
  Sex: Female

DRUGS (7)
  1. CLOZARIL [Suspect]
     Indication: SCHIZOPHRENIA
     Dosage: 100 MG, BID, ORAL
     Route: 048
     Dates: start: 20050921
  2. CLOZARIL [Suspect]
     Dosage: GRADUAL TITRATION, ORAL
     Route: 048
     Dates: start: 20050801, end: 20050920
  3. CELEXA [Concomitant]
  4. SEROQUEL [Concomitant]
  5. HALDOL [Concomitant]
  6. VITAMIN B6 [Concomitant]
  7. ANTIPSYCHOTICS (NO INGREDIENTS/SUBSTANCES) [Concomitant]

REACTIONS (2)
  - CONVULSION [None]
  - ELECTROENCEPHALOGRAM ABNORMAL [None]
